FAERS Safety Report 9819979 (Version 1)
Quarter: 2013Q4

REPORT INFORMATION
  Report Type: Spontaneous
  Country: US (occurrence: None)
  Receive Date: 20131223
  Receipt Date: 20131223
  Transmission Date: 20140711
  Serious: No
  Sender: FDA-Public Use
  Company Number: 222745

PATIENT
  Age: 69 Year
  Sex: Male

DRUGS (1)
  1. PICATO (0.015 %) [Suspect]
     Indication: ACTINIC KERATOSIS
     Route: 062
     Dates: start: 20130715, end: 20130717

REACTIONS (3)
  - Rhinorrhoea [None]
  - Lacrimation increased [None]
  - Eye irritation [None]
